FAERS Safety Report 7201449-4 (Version None)
Quarter: 2010Q4

REPORT INFORMATION
  Report Type: 
  Country: None (occurrence: None)
  Receive Date: 20101215
  Receipt Date: 20101202
  Transmission Date: 20110411
  Serious: Yes (Hospitalization)
  Sender: FDA-Public Use
  Company Number: ALD1-JP-2010-0064

PATIENT
  Age: 68 Year
  Sex: Male

DRUGS (1)
  1. ALDOMET [Suspect]
     Indication: PRODUCT USED FOR UNKNOWN INDICATION
     Dosage: ORAL
     Route: 048
     Dates: start: 20000101, end: 20101120

REACTIONS (1)
  - HAEMOLYTIC ANAEMIA [None]
